FAERS Safety Report 7981478-3 (Version None)
Quarter: 2011Q4

REPORT INFORMATION
  Report Type: 
  Country: None (occurrence: None)
  Receive Date: 20111215
  Receipt Date: 20111208
  Transmission Date: 20120403
  Serious: Yes (Hospitalization)
  Sender: FDA-Public Use
  Company Number: DK-PFIZER INC-2011300320

PATIENT
  Age: 62 Year
  Sex: Female
  Weight: 84.7 kg

DRUGS (9)
  1. CYCLOPHOSPHAMIDE [Suspect]
     Indication: DIFFUSE LARGE B-CELL LYMPHOMA
     Dosage: 1500 MG, UNK
     Route: 042
     Dates: start: 20111026
  2. VINCRISTINE [Suspect]
     Indication: DIFFUSE LARGE B-CELL LYMPHOMA
     Dosage: 2 MG, UNK
     Route: 042
     Dates: start: 20111026
  3. FLUCONAZOLE [Concomitant]
     Dosage: 100 ABSENT, UNK
     Route: 048
     Dates: start: 20111102, end: 20111104
  4. SULFAMETHOXAZOLE [Concomitant]
     Dosage: 400 ABSENT, UNK
     Route: 048
     Dates: start: 20111021, end: 20111104
  5. RITUXIMAB [Suspect]
     Indication: DIFFUSE LARGE B-CELL LYMPHOMA
     Dosage: 800 MG, UNK
     Route: 042
     Dates: start: 20111026
  6. VALACYCLOVIR HYDROCHLORIDE [Concomitant]
     Dosage: 1000 ABSENT, UNK
     Dates: start: 20111021, end: 20111104
  7. PREDNISOLONE [Suspect]
     Indication: DIFFUSE LARGE B-CELL LYMPHOMA
     Dosage: 100 MG, UNK
     Route: 048
     Dates: start: 20111026
  8. DOXORUBICIN HCL [Suspect]
     Indication: DIFFUSE LARGE B-CELL LYMPHOMA
     Dosage: 100 MG, UNK
     Route: 042
     Dates: start: 20111026
  9. NEUPOGEN [Suspect]
     Indication: DIFFUSE LARGE B-CELL LYMPHOMA
     Dosage: 6 MG, UNK
     Route: 058
     Dates: start: 20111027

REACTIONS (1)
  - PNEUMONIA [None]
